FAERS Safety Report 4785495-6 (Version None)
Quarter: 2005Q3

REPORT INFORMATION
  Report Type: 
  Country: None (occurrence: None)
  Receive Date: 20050929
  Receipt Date: 22000922
  Transmission Date: 20060218
  Serious: Yes (Hospitalization)
  Sender: FDA-Public Use
  Company Number: FRWYE002623SEP05

PATIENT
  Age: 54 Year
  Sex: Male

DRUGS (4)
  1. EFFEXOR [Suspect]
     Dosage: 150 MG DAILY, ORAL
     Route: 048
     Dates: end: 20040906
  2. ALPRAZOLAM [Suspect]
     Dosage: 2 G 1X PER 1 DAY, ORAL
     Route: 048
     Dates: end: 20040906
  3. NOZINAN (LEVOMEPROMAZINE) [Suspect]
     Dosage: 200 MG 1X PER 1 DAY, ORAL
     Route: 048
     Dates: end: 20040906
  4. STILNOX (ZOLPIDEM) [Suspect]
     Dosage: 2 TABLET 1X PER 1 DAY, ORAL
     Route: 048
     Dates: end: 20040906

REACTIONS (7)
  - DRUG LEVEL ABOVE THERAPEUTIC [None]
  - DYSPNOEA [None]
  - HYPOREFLEXIA [None]
  - HYPOVENTILATION [None]
  - ORTHOPNOEA [None]
  - RESPIRATORY ACIDOSIS [None]
  - SOMNOLENCE [None]
